FAERS Safety Report 8590716-8 (Version None)
Quarter: 2012Q3

REPORT INFORMATION
  Report Type: 
  Country: None (occurrence: None)
  Receive Date: 20120813
  Receipt Date: 20120718
  Transmission Date: 20120928
  Serious: Yes (Hospitalization, Other)
  Sender: FDA-Public Use
  Company Number: JP-009507513-1208JPN005203

PATIENT

DRUGS (5)
  1. PEG-INTRON [Suspect]
     Indication: HEPATITIS C
     Dosage: 1.5MCG/KG/WEEK
     Route: 058
     Dates: start: 20120521
  2. REBETOL [Suspect]
     Dosage: 200 MG ONCE
     Route: 048
     Dates: start: 20120615
  3. REBETOL [Suspect]
     Indication: HEPATITIS C
     Dosage: 400 MG ONCE
     Route: 048
     Dates: start: 20120521, end: 20120614
  4. TELAVIC [Suspect]
     Indication: HEPATITIS C
     Dosage: 1500 MG ONCE
     Route: 048
     Dates: start: 20120521, end: 20120624
  5. TELAVIC [Suspect]
     Dosage: 1000 MG ONCE
     Route: 048
     Dates: start: 20120625

REACTIONS (1)
  - SUDDEN HEARING LOSS [None]
